FAERS Safety Report 5425493-2 (Version None)
Quarter: 2007Q3

REPORT INFORMATION
  Report Type: 
  Country: None (occurrence: None)
  Receive Date: 20070731
  Receipt Date: 20070405
  Transmission Date: 20080115
  Serious: No
  Sender: FDA-Public Use
  Company Number: US200704001637

PATIENT
  Sex: Female

DRUGS (3)
  1. BYETTA [Suspect]
     Indication: DIABETES MELLITUS
     Dosage: SUBCUTANEOUS
     Route: 058
  2. EXENATIDE PEN (EXENATIDE PEN) [Concomitant]
  3. LANTUS [Concomitant]

REACTIONS (1)
  - TINNITUS [None]
